FAERS Safety Report 15252006 (Version 1)
Quarter: 2018Q3

REPORT INFORMATION
  Report Type: Report from Study
  Country: US (occurrence: US)
  Receive Date: 20180807
  Receipt Date: 20180807
  Transmission Date: 20181010
  Serious: Yes (Other)
  Sender: FDA-Public Use
  Company Number: US-ALLERGAN-1835870US

PATIENT
  Age: 63 Year
  Sex: Female

DRUGS (1)
  1. BIMATOPROST 0.01% SOL (9668X) [Suspect]
     Active Substance: BIMATOPROST
     Indication: INTRAOCULAR PRESSURE TEST
     Dosage: UNK, UNKNOWN
     Route: 047
     Dates: end: 201807

REACTIONS (4)
  - Ocular hyperaemia [Unknown]
  - Intraocular pressure increased [Unknown]
  - Eye irritation [Unknown]
  - Conjunctivitis [Recovered/Resolved]

NARRATIVE: CASE EVENT DATE: 201806
